FAERS Safety Report 9044046 (Version 1)
Quarter: 2013Q1

REPORT INFORMATION
  Report Type: Report from Study
  Country: US (occurrence: US)
  Receive Date: 20130130
  Receipt Date: 20130130
  Transmission Date: 20140127
  Serious: No
  Sender: FDA-Public Use
  Company Number: US-ABBOTT-12P-163-0954456-00

PATIENT
  Age: 69 Year
  Sex: Female

DRUGS (5)
  1. HUMIRA 40 MG/0.8 ML PEN [Suspect]
     Indication: CROHN^S DISEASE
     Dates: start: 20120706, end: 20120706
  2. HUMIRA 40 MG/0.8 ML PEN [Suspect]
     Dates: start: 20120707, end: 20120707
  3. HUMIRA 40 MG/0.8 ML PEN [Suspect]
     Dates: start: 20120707
  4. UNKNOWN MEDICATION [Concomitant]
     Indication: BLOOD PRESSURE
  5. OVER THE COUNTER SUPPLEMENTS [Concomitant]
     Indication: PRODUCT USED FOR UNKNOWN INDICATION

REACTIONS (3)
  - Device malfunction [Recovering/Resolving]
  - Injection site pain [Recovering/Resolving]
  - Injection site bruising [Recovering/Resolving]
